FAERS Safety Report 10200999 (Version 22)
Quarter: 2014Q4

REPORT INFORMATION
  Report Type: Report from Study
  Country: CA (occurrence: CA)
  Receive Date: 20140528
  Receipt Date: 20141223
  Transmission Date: 20150528
  Serious: Yes (Death, Hospitalization, Other)
  Sender: FDA-Public Use
  Company Number: PHHY2013CA139098

PATIENT
  Age: 56 Year
  Sex: Male

DRUGS (9)
  1. ZOMETA [Suspect]
     Active Substance: ZOLEDRONIC ACID
     Dosage: 4 MG, EVERY MONTH
     Route: 042
  2. ZOMETA [Suspect]
     Active Substance: ZOLEDRONIC ACID
     Dosage: 3.5 MG, ONCE A MONTH
     Route: 042
  3. ZOMETA [Suspect]
     Active Substance: ZOLEDRONIC ACID
     Indication: HYPERCALCAEMIA OF MALIGNANCY
     Dosage: 4 MG, EVERY 4 WEEKS
     Route: 042
     Dates: start: 20131107
  4. ZOMETA [Suspect]
     Active Substance: ZOLEDRONIC ACID
     Dosage: 4 MG, EVERY WEEK
     Route: 042
  5. ZOMETA [Suspect]
     Active Substance: ZOLEDRONIC ACID
     Dosage: 4 MG, EVERY 2 WEEKS
     Route: 042
  6. ZOMETA [Suspect]
     Active Substance: ZOLEDRONIC ACID
     Dosage: 3 MG, EVERY 2 WEEKS
     Route: 042
  7. ZOMETA [Suspect]
     Active Substance: ZOLEDRONIC ACID
     Dosage: 4 MG, EVERY WEEK
     Route: 042
  8. ZOMETA [Suspect]
     Active Substance: ZOLEDRONIC ACID
     Dosage: 4 MG, EVERY WEEK
     Route: 042
  9. ZOMETA [Suspect]
     Active Substance: ZOLEDRONIC ACID
     Dosage: 4 MG, EVERY WEEK
     Route: 042

REACTIONS (16)
  - Death [Fatal]
  - Memory impairment [Unknown]
  - Poor venous access [Unknown]
  - Dehydration [Unknown]
  - Oral pain [Recovered/Resolved]
  - Feeling cold [Unknown]
  - Glomerular filtration rate decreased [Unknown]
  - Blood calcium increased [Unknown]
  - Terminal state [Unknown]
  - Osteonecrosis of jaw [Unknown]
  - Renal impairment [Unknown]
  - Toothache [Recovering/Resolving]
  - Confusional state [Unknown]
  - Cystitis [Unknown]
  - Blood creatinine increased [Unknown]
  - Blood calcium decreased [Not Recovered/Not Resolved]

NARRATIVE: CASE EVENT DATE: 20131218
